FAERS Safety Report 21936699 (Version 2)
Quarter: 2023Q1

REPORT INFORMATION
  Report Type: Spontaneous
  Country: US (occurrence: US)
  Receive Date: 20230201
  Receipt Date: 20230222
  Transmission Date: 20230418
  Serious: Yes (Other)
  Sender: FDA-Public Use
  Company Number: US-PFIZER INC-202300042684

PATIENT
  Age: 38 Year
  Sex: Female
  Weight: 108.84 kg

DRUGS (9)
  1. PAXLOVID [Suspect]
     Active Substance: NIRMATRELVIR\RITONAVIR
     Indication: COVID-19 treatment
     Dosage: [PF-07321332 300 MG]/[RITONAVIR 100 MG]; 2X/DAY
     Route: 048
     Dates: start: 20230128, end: 20230201
  2. SERTRALINE [Concomitant]
     Active Substance: SERTRALINE HYDROCHLORIDE
     Dosage: UNK
  3. FLONASE [Concomitant]
     Active Substance: FLUTICASONE PROPIONATE
     Dosage: UNK
     Dates: end: 20230129
  4. OMEPRAZOLE [Concomitant]
     Active Substance: OMEPRAZOLE
     Dosage: UNK
  5. ZOLOFT [Concomitant]
     Active Substance: SERTRALINE HYDROCHLORIDE
     Indication: Anxiety
     Dosage: 100 MG, 1X/DAY
     Dates: start: 201404
  6. ZOLOFT [Concomitant]
     Active Substance: SERTRALINE HYDROCHLORIDE
     Indication: Panic attack
  7. MUCINEX D [Concomitant]
     Active Substance: GUAIFENESIN\PSEUDOEPHEDRINE HYDROCHLORIDE
     Indication: Dizziness
     Dosage: UNK
     Dates: start: 20230128, end: 20230129
  8. GUAIFENESIN [Concomitant]
     Active Substance: GUAIFENESIN
     Dosage: SWITCH TO 600 MG GUAIFENESIN TWICE PER DAY, BUT ONLY TOOK IT ONCE
     Dates: start: 20230130
  9. VITAMINS NOS [Concomitant]
     Active Substance: VITAMINS
     Dosage: UNK

REACTIONS (7)
  - Syncope [Recovered/Resolved]
  - Dizziness [Recovered/Resolved]
  - Tremor [Recovered/Resolved]
  - Cold sweat [Recovered/Resolved]
  - Nausea [Recovered/Resolved]
  - Dysgeusia [Recovered/Resolved]
  - Hyperhidrosis [Recovered/Resolved]

NARRATIVE: CASE EVENT DATE: 20230128
